FAERS Safety Report 20454718 (Version 1)
Quarter: 2022Q1

REPORT INFORMATION
  Report Type: Spontaneous
  Country: US (occurrence: None)
  Receive Date: 20220209
  Receipt Date: 20220209
  Transmission Date: 20220423
  Serious: Yes (Hospitalization, Other)
  Sender: FDA-Public Use
  Company Number: None

PATIENT
  Age: 83 Year
  Sex: Female
  Weight: 53.1 kg

DRUGS (8)
  1. AZITHROMYCIN [Suspect]
     Active Substance: AZITHROMYCIN
     Indication: Cough
     Dosage: OTHER FREQUENCY : 1 (2) 4 (1);?QUANTITY: 6 TABLETS
     Route: 048
     Dates: start: 20220122, end: 20220126
  2. GREEN VIBRANCE [Concomitant]
  3. ZINC [Concomitant]
     Active Substance: ZINC
  4. VITAMIN D3 [Concomitant]
     Active Substance: CHOLECALCIFEROL
  5. MAGNESIUM [Concomitant]
     Active Substance: MAGNESIUM
  6. CALCIUM [Concomitant]
     Active Substance: CALCIUM
  7. BIOTIN [Concomitant]
     Active Substance: BIOTIN
  8. COENZYME Q10 [Concomitant]
     Active Substance: DIETARY SUPPLEMENT\UBIDECARENONE

REACTIONS (6)
  - Dehydration [None]
  - Weight decreased [None]
  - Dysgeusia [None]
  - Nausea [None]
  - Faeces discoloured [None]
  - Malaise [None]

NARRATIVE: CASE EVENT DATE: 20220122
